FAERS Safety Report 7464099-0 (Version None)
Quarter: 2011Q2

REPORT INFORMATION
  Report Type: 
  Country: None (occurrence: None)
  Receive Date: 20110506
  Receipt Date: 20110418
  Transmission Date: 20111010
  Serious: Yes (Hospitalization)
  Sender: FDA-Public Use
  Company Number: US-ASTRAZENECA-2011SE17297

PATIENT
  Age: 58 Year
  Sex: Female

DRUGS (22)
  1. DASATIMIB [Suspect]
     Indication: BREAST CANCER
     Dosage: 100MG PER DAY (ARM 1)
     Route: 048
     Dates: start: 20100930, end: 20110112
  2. ATIVAN [Concomitant]
     Dates: start: 20100910
  3. CALTRATE+D [Concomitant]
     Dates: start: 20090601
  4. LOVAZA [Concomitant]
     Dates: start: 20090601
  5. SIMPLY SLEEP TYLENOL [Concomitant]
     Dates: start: 20081001
  6. XELODA [Suspect]
     Indication: CHEMOTHERAPY
     Dosage: 1000 MG/ME2 TWICE DAILY (2000MG IN THE MORNING AND 1500MG IN THE EVENING) FROM MONDAY TO FRIDAY
     Route: 048
     Dates: start: 20110119
  7. TAXOTERE [Suspect]
     Route: 065
  8. VITAMIN B [Concomitant]
     Dates: start: 20090601
  9. XANAX [Concomitant]
     Dates: start: 20100910
  10. DEXAMETHASONE [Concomitant]
     Dates: start: 20101004
  11. DILAUDID [Concomitant]
     Dates: start: 20101124
  12. CALCIPOTRIOL [Concomitant]
     Dates: start: 19900101
  13. BETAMETHASONE [Concomitant]
     Dates: start: 19900101
  14. FULVESTRANT [Suspect]
     Indication: BREAST CANCER
     Dosage: 500MG (DAY 1 ARM 1B)
     Route: 030
     Dates: start: 20101001, end: 20110112
  15. FLOMAX [Concomitant]
     Dates: start: 20061201
  16. PHENERGAN HCL [Concomitant]
     Dates: start: 20101126
  17. GEMZAR [Suspect]
     Indication: CHEMOTHERAPY
     Dosage: 850MG/ME2 (1400 MG IN ONE WEEK) THREE WEEKS ON AND ONE WEEK OFF
     Route: 042
     Dates: start: 20110119
  18. AVASTIN [Suspect]
     Route: 065
  19. VITAMIN D [Concomitant]
     Dates: start: 20090601
  20. CLARITIN [Concomitant]
     Dates: start: 20100922
  21. FULVICIN-U/F TAB [Suspect]
     Route: 065
  22. LEVOXYL [Concomitant]
     Dates: start: 20090601

REACTIONS (3)
  - HYDROPNEUMOTHORAX [None]
  - DYSPNOEA [None]
  - CHOLECYSTITIS ACUTE [None]
